FAERS Safety Report 6906463-1 (Version None)
Quarter: 2010Q3

REPORT INFORMATION
  Report Type: 
  Country: None (occurrence: None)
  Receive Date: 20100804
  Receipt Date: 20100723
  Transmission Date: 20110219
  Serious: Yes (Hospitalization)
  Sender: FDA-Public Use
  Company Number: US-ELI_LILLY_AND_COMPANY-US200908004148

PATIENT
  Sex: Male

DRUGS (12)
  1. GEMCITABINE HCL [Suspect]
     Indication: BLADDER CANCER
     Dosage: 1000 MG/M2, OTHER
     Route: 042
     Dates: start: 20090428
  2. GEMCITABINE HCL [Suspect]
     Dosage: UNK, OTHER
     Route: 042
     Dates: start: 20090512, end: 20090101
  3. GEMCITABINE HCL [Suspect]
     Dosage: 800 MG/M2, OTHER
     Route: 042
     Dates: start: 20090623
  4. CISPLATIN [Suspect]
     Indication: BLADDER CANCER
     Dosage: 70 MG/M2, OTHER
     Route: 042
     Dates: start: 20090428
  5. CISPLATIN [Suspect]
     Dosage: 50 MG/M2, OTHER
     Route: 042
     Dates: start: 20090623, end: 20090721
  6. DILANTIN [Concomitant]
     Indication: CONVULSION
  7. PHENOBARBITAL [Concomitant]
     Indication: CONVULSION
  8. LORAZEPAM [Concomitant]
  9. ARIXTRA [Concomitant]
     Indication: PULMONARY EMBOLISM
     Dates: start: 20090618
  10. ALEVE (CAPLET) [Concomitant]
  11. COMPAZINE [Concomitant]
  12. MIDODRINE HYDROCHLORIDE [Concomitant]
     Dosage: UNK, UNK

REACTIONS (1)
  - AUTONOMIC NEUROPATHY [None]
